FAERS Safety Report 20774373 (Version 2)
Quarter: 2022Q2

REPORT INFORMATION
  Report Type: Report from Study
  Country: HU (occurrence: HU)
  Receive Date: 20220502
  Receipt Date: 20220504
  Transmission Date: 20220720
  Serious: Yes (Death, Other)
  Sender: FDA-Public Use
  Company Number: HU-ABBVIE-22K-076-4376556-00

PATIENT
  Sex: Female

DRUGS (6)
  1. CARBIDOPA\LEVODOPA [Suspect]
     Active Substance: CARBIDOPA\LEVODOPA
     Indication: Parkinson^s disease
     Dosage: MORNING DOSE: 3.0 ML; CONTINUOUS DOSE: 3.6 ML/HOUR; EXTRA DOSE: 0.9 ML
     Route: 050
     Dates: start: 20141001
  2. CARBIDOPA\LEVODOPA [Suspect]
     Active Substance: CARBIDOPA\LEVODOPA
  3. PERINDOPRIL [Concomitant]
     Active Substance: PERINDOPRIL
     Indication: Hypertension
     Dosage: HALF TABLET TWO TIMES DAILY
     Route: 048
  4. QUETIAPINE [Concomitant]
     Active Substance: QUETIAPINE
     Indication: Product used for unknown indication
     Dosage: 1-1-2 TABLETS DAILY
     Route: 048
  5. tramadol paracetamol DORETA [Concomitant]
     Indication: Product used for unknown indication
     Dosage: 37,5 MG TRAMADOL-HIDROCLORIDE AND 325 MG PARACETAMOL/TABLET
     Route: 048
  6. ENOXAPARIN [Concomitant]
     Active Substance: ENOXAPARIN
     Indication: Prophylaxis
     Dosage: 4000 NE (40 MG)/0,4 ML INJECTION
     Route: 058

REACTIONS (1)
  - General physical health deterioration [Fatal]

NARRATIVE: CASE EVENT DATE: 20220401
